FAERS Safety Report 5139289-2 (Version None)
Quarter: 2006Q4

REPORT INFORMATION
  Report Type: 
  Country: None (occurrence: None)
  Receive Date: 20061024
  Receipt Date: 20061013
  Transmission Date: 20070319
  Serious: Yes (Hospitalization)
  Sender: FDA-Public Use
  Company Number: TPA2006A01773

PATIENT
  Age: 66 Year
  Sex: Male
  Weight: 118.8424 kg

DRUGS (13)
  1. ACTOS [Suspect]
     Indication: DIABETES MELLITUS NON-INSULIN-DEPENDENT
     Dosage: SEE IMAGE
     Route: 048
     Dates: end: 20051013
  2. ACTOS [Suspect]
     Indication: DIABETES MELLITUS NON-INSULIN-DEPENDENT
     Dosage: SEE IMAGE
     Route: 048
     Dates: start: 20051013
  3. LYRICA [Suspect]
     Indication: NERVE INJURY
     Dosage: 1 IN 1 D, PER ORAL
     Route: 048
     Dates: start: 20060401, end: 20060717
  4. GLYBURIDE [Suspect]
     Indication: DIABETES MELLITUS NON-INSULIN-DEPENDENT
     Dosage: 10 MG, 2 IN 1 D, PER ORAL
     Route: 048
     Dates: start: 20000101
  5. LOTENSIN [Concomitant]
  6. COREG [Concomitant]
  7. ALLOPURINOL [Concomitant]
  8. HYDROCHLOROTHIAZIDE [Concomitant]
  9. SYNTHROID [Concomitant]
  10. LIPITOR [Concomitant]
  11. CIPRO [Concomitant]
  12. LASIX [Concomitant]
  13. UNKNOWN ANTIBIOTICS (ANTIBIOTICS) [Concomitant]

REACTIONS (11)
  - ANIMAL BITE [None]
  - BACK PAIN [None]
  - BLOOD CREATININE INCREASED [None]
  - BLOOD GLUCOSE INCREASED [None]
  - CARDIAC DISORDER [None]
  - DYSPNOEA [None]
  - INFECTION [None]
  - LYMPHADENOPATHY [None]
  - PALPITATIONS [None]
  - RENAL PAIN [None]
  - WEIGHT INCREASED [None]
